FAERS Safety Report 9905630 (Version 1)
Quarter: 2013Q2

REPORT INFORMATION
  Report Type: Spontaneous
  Country: US (occurrence: None)
  Receive Date: 20130305
  Receipt Date: 20130305
  Transmission Date: 20140414
  Serious: Yes (Other)
  Sender: FDA-Public Use
  Company Number: 163-21880-12041730

PATIENT
  Age: 67 Year
  Sex: Female

DRUGS (3)
  1. REVLIMID (LENALIDOMIDE) (15 MILLIGRAM, CAPSULES) [Suspect]
     Indication: PLASMA CELL MYELOMA
     Route: 048
     Dates: start: 20080312, end: 20090124
  2. COUMADIN (WARFARIN SODIUM) (UNKNOWN) [Concomitant]
  3. VITAMIN D (ERGOCALCIFEROL) (UNKNOWN) [Concomitant]

REACTIONS (5)
  - Thrombosis [None]
  - Anaemia [None]
  - Rash [None]
  - Plasma cell myeloma [None]
  - No therapeutic response [None]
